FAERS Safety Report 9062915 (Version 3)
Quarter: 2014Q2

REPORT INFORMATION
  Report Type: Spontaneous
  Country: PT (occurrence: FR)
  Receive Date: 20130213
  Receipt Date: 20140625
  Transmission Date: 20141212
  Serious: Yes (Hospitalization)
  Sender: FDA-Public Use
  Company Number: 2013SP002178

PATIENT
  Age: 24 Year
  Sex: Female
  Weight: 55 kg

DRUGS (9)
  1. ZEBINIX (ESLICARBAZEPINE ACETATE) [Suspect]
     Indication: EPILEPSY
     Route: 048
     Dates: start: 20130717, end: 20130726
  2. ZEBINIX (ESLICARBAZEPINE ACETATE) [Suspect]
     Indication: EPILEPSY
     Route: 048
     Dates: start: 20130716, end: 20130716
  3. ZEBINIX (ESLICARBAZEPINE ACETATE) [Suspect]
     Indication: EPILEPSY
     Route: 048
     Dates: start: 20130710, end: 20130715
  4. ZEBINIX (ESLICARBAZEPINE ACETATE) [Suspect]
     Indication: EPILEPSY
     Route: 048
     Dates: start: 20130704, end: 20130709
  5. ZEBINIX (ESLICARBAZEPINE ACETATE) [Suspect]
     Indication: EPILEPSY
     Route: 048
     Dates: start: 20130625, end: 20130703
  6. ZONEGRAN [Concomitant]
     Indication: EPILEPSY
     Route: 048
     Dates: start: 2010
  7. KEPPRA [Concomitant]
     Indication: EPILEPSY
     Route: 048
     Dates: start: 2009, end: 20130726
  8. LEXOMIL [Concomitant]
     Indication: ANXIETY
     Route: 048
     Dates: start: 20110510
  9. RIVOTRIL [Concomitant]
     Indication: EPILEPSY
     Dates: start: 20120326

REACTIONS (4)
  - Hypotonia [Recovered/Resolved]
  - Muscular weakness [Recovered/Resolved]
  - Dizziness [Recovered/Resolved]
  - Overdose [Recovered/Resolved]
